FAERS Safety Report 5663641-X (Version None)
Quarter: 2008Q1

REPORT INFORMATION
  Report Type: 
  Country: None (occurrence: None)
  Receive Date: 20080310
  Receipt Date: 20080229
  Transmission Date: 20080703
  Serious: Yes (Disabling)
  Sender: FDA-Public Use
  Company Number: 18615

PATIENT
  Age: 67 Year
  Sex: Female

DRUGS (5)
  1. METHOTREXATE [Suspect]
  2. ENBREL [Suspect]
     Indication: RHEUMATOID ARTHRITIS
     Dosage: 50 MG
     Dates: start: 20060101
  3. BENDROFLUAZIDE [Concomitant]
  4. FOLIC ACID [Concomitant]
  5. LACIDIPINE [Concomitant]

REACTIONS (2)
  - DYSPNOEA [None]
  - WHEEZING [None]
